FAERS Safety Report 6788574-7 (Version None)
Quarter: 2010Q2

REPORT INFORMATION
  Report Type: 
  Country: None (occurrence: None)
  Receive Date: 20100623
  Receipt Date: 20080422
  Transmission Date: 20101027
  Serious: No
  Sender: FDA-Public Use
  Company Number: US-PFIZER INC-2008029665

PATIENT
  Sex: Female
  Weight: 127.27 kg

DRUGS (1)
  1. SOMAVERT [Suspect]
     Indication: ACROMEGALY
     Dates: start: 20070801

REACTIONS (2)
  - ENDOCRINE TEST ABNORMAL [None]
  - MENORRHAGIA [None]
